FAERS Safety Report 8053672-7 (Version None)
Quarter: 2012Q1

REPORT INFORMATION
  Report Type: 
  Country: None (occurrence: None)
  Receive Date: 20120118
  Receipt Date: 20120110
  Transmission Date: 20120608
  Serious: Yes (Other)
  Sender: FDA-Public Use
  Company Number: PHHY2012GB002006

PATIENT
  Age: 34 Year
  Sex: Female

DRUGS (4)
  1. METOCLOPRAMIDE [Suspect]
     Dosage: 9 MG/M2, OVER 3 DAYS
  2. DEXAMETHASONE TAB [Suspect]
     Dosage: 9 MG/M2, OVER 3 DAYS
  3. ONDANSETRON [Suspect]
     Dosage: 9 MG/M2, OVER 3 DAYS
  4. IFOSFAMIDE [Suspect]
     Dosage: 9 MG/M2, OVER 3 DAYS

REACTIONS (1)
  - BRADYCARDIA [None]
